FAERS Safety Report 5269933-0 (Version None)
Quarter: 2007Q1

REPORT INFORMATION
  Report Type: 
  Country: None (occurrence: None)
  Receive Date: 20070314
  Receipt Date: 20070302
  Transmission Date: 20070707
  Serious: Yes (Hospitalization, Disabling)
  Sender: FDA-Public Use
  Company Number: SU-2007-005985

PATIENT
  Sex: Female

DRUGS (50)
  1. BENICAR [Suspect]
     Indication: HYPERTENSION
     Dosage: 40 MG PO
     Route: 048
  2. CEFAZOLIN [Suspect]
     Indication: DRUG USE FOR UNKNOWN INDICATION
     Dosage: 500 MG
  3. FLUTICASONE PROPIONATE [Suspect]
     Indication: DRUG USE FOR UNKNOWN INDICATION
  4. AMOXICILLIN + CLAVULANATE POTASSIUM [Suspect]
     Indication: DRUG USE FOR UNKNOWN INDICATION
     Dosage: 1750 MG DAILY
  5. FLUTICASONE PROPIONATE [Suspect]
     Indication: DRUG USE FOR UNKNOWN INDICATION
  6. BUPROPION HYDROCHLORIDE [Suspect]
     Indication: DRUG USE FOR UNKNOWN INDICATION
  7. ALPRAZOLAM [Suspect]
     Indication: DRUG USE FOR UNKNOWN INDICATION
  8. CETIRIZINE HCL [Suspect]
     Indication: DRUG USE FOR UNKNOWN INDICATION
  9. XALATAN [Suspect]
     Indication: GLAUCOMA
     Dosage: GTT EY
  10. DEXAMETHASONE SODIUM SUCCINATE [Suspect]
     Indication: DRUG USE FOR UNKNOWN INDICATION
  11. CARISOPRODOL [Suspect]
     Indication: DRUG USE FOR UNKNOWN INDICATION
  12. CLOTRIMAZOLE [Suspect]
     Indication: DRUG USE FOR UNKNOWN INDICATION
  13. CLONAZEPAM [Suspect]
     Indication: MUSCLE SPASMS
  14. TRAZODONE HYDROCHLORIDE [Suspect]
     Indication: DRUG USE FOR UNKNOWN INDICATION
  15. GABAPENTIN [Suspect]
     Indication: MUSCLE SPASMS
  16. FLUOXETINE HYDROCHLORIDE [Suspect]
     Indication: DRUG USE FOR UNKNOWN INDICATION
  17. ATENOLOL [Suspect]
     Indication: HYPERTENSION
     Dosage: 50 MG
  18. MELOXICAM [Suspect]
     Indication: DRUG USE FOR UNKNOWN INDICATION
  19. ZYDONE [Suspect]
     Indication: DRUG USE FOR UNKNOWN INDICATION
  20. ALLEGRA-D  /01367401/ [Suspect]
     Indication: DRUG USE FOR UNKNOWN INDICATION
  21. MOMETASONE FUROATE [Suspect]
     Indication: DRUG USE FOR UNKNOWN INDICATION
  22. CANDESARTAN CILEXETIL [Suspect]
     Indication: DRUG USE FOR UNKNOWN INDICATION
  23. LANSOPRAZOLE [Suspect]
     Indication: DRUG USE FOR UNKNOWN INDICATION
  24. FLUCONAZOLE [Suspect]
     Indication: DRUG USE FOR UNKNOWN INDICATION
  25. ESOMEPRAZOLE MAGNESIUM [Suspect]
     Indication: DRUG USE FOR UNKNOWN INDICATION
  26. LOTRISONE [Suspect]
     Indication: DRUG USE FOR UNKNOWN INDICATION
  27. RIZATRIPTAN BENZOATE [Suspect]
     Indication: DRUG USE FOR UNKNOWN INDICATION
  28. LOMOTIL [Suspect]
     Indication: DRUG USE FOR UNKNOWN INDICATION
  29. KETOCONAZOLE [Suspect]
     Indication: DRUG USE FOR UNKNOWN INDICATION
     Dosage: 200 MG
  30. METAXALONE [Suspect]
     Indication: MUSCLE SPASMS
  31. PERCOCET [Suspect]
     Indication: DRUG USE FOR UNKNOWN INDICATION
  32. ERYTHROMYCIN [Suspect]
     Indication: DRUG USE FOR UNKNOWN INDICATION
     Dosage: MG
  33. CEPHALEXIN [Suspect]
     Indication: DRUG USE FOR UNKNOWN INDICATION
     Dosage: MG PO
     Route: 048
  34. MUPIROCIN [Suspect]
     Indication: DRUG USE FOR UNKNOWN INDICATION
  35. OSELTAMIVIR PHOSPHATE [Suspect]
     Indication: DRUG USE FOR UNKNOWN INDICATION
     Dosage: MG PO
     Route: 048
  36. TRIAMCINOLONE ACETONIDE [Suspect]
     Indication: DRUG USE FOR UNKNOWN INDICATION
  37. EXGEST LA [Suspect]
     Indication: DRUG USE FOR UNKNOWN INDICATION
  38. TRIAZOLAM [Suspect]
     Indication: DRUG USE FOR UNKNOWN INDICATION
     Dosage: MG
  39. LORCET-HD [Suspect]
     Indication: DRUG USE FOR UNKNOWN INDICATION
  40. ARTHROTEC [Suspect]
     Indication: DRUG USE FOR UNKNOWN INDICATION
     Dosage: MG
  41. DIAZEPAM [Suspect]
     Indication: DRUG USE FOR UNKNOWN INDICATION
  42. CELECOXIB [Suspect]
     Indication: PAIN
     Dosage: MG
  43. FUROSEMIDE [Suspect]
     Indication: HYPERTENSION
     Dosage: MG
  44. VERAPAMIL [Suspect]
     Indication: HYPERTENSION
     Dosage: MG
  45. METOPROLOL TARTRATE [Suspect]
     Indication: HYPERTENSION
  46. LISINOPRIL [Suspect]
     Indication: HYPERTENSION
  47. BISOPROLOL [Suspect]
     Indication: HYPERTENSION
  48. AMLODIPINE [Suspect]
     Indication: HYPERTENSION
     Dosage: MG
  49. LOSARTAN POTASSIUM [Suspect]
     Indication: HYPERTENSION
     Dates: start: 20020101
  50. VERAPAMIL HYDROCHLORIDE [Suspect]
     Indication: HYPERTENSION
     Dates: start: 20020101

REACTIONS (3)
  - NEUROPATHY PERIPHERAL [None]
  - PURPURA SENILE [None]
  - RENAL FAILURE [None]
